FAERS Safety Report 4474448-3 (Version None)
Quarter: 2004Q4

REPORT INFORMATION
  Report Type: 
  Country: None (occurrence: None)
  Receive Date: 20041014
  Receipt Date: 20041011
  Transmission Date: 20050328
  Serious: Yes (Hospitalization)
  Sender: FDA-Public Use
  Company Number: AU-MERCK-0410AUS00129

PATIENT
  Sex: Female

DRUGS (5)
  1. ANTIMICROBIAL (UNSPECIFIED) [Concomitant]
     Route: 065
  2. ATENOLOL [Concomitant]
     Indication: HYPERTENSION
     Route: 065
  3. INFLUENZA VIRUS SPLIT VIRION 3V VACCINE INACTIVATED [Concomitant]
     Route: 065
  4. VIOXX [Suspect]
     Route: 048
     Dates: start: 20021101, end: 20021212
  5. VIOXX [Suspect]
     Route: 048
     Dates: start: 20021213

REACTIONS (1)
  - CEREBROVASCULAR ACCIDENT [None]
